FAERS Safety Report 25812905 (Version 1)
Quarter: 2025Q3

REPORT INFORMATION
  Report Type: Spontaneous
  Country: US (occurrence: US)
  Receive Date: 20250917
  Receipt Date: 20250917
  Transmission Date: 20251020
  Serious: No
  Sender: SANOFI AVENTIS
  Company Number: US-SA-2025SA276395

PATIENT
  Sex: Female
  Weight: 92.73 kg

DRUGS (5)
  1. DUPIXENT [Suspect]
     Active Substance: DUPILUMAB
     Indication: Dermatitis atopic
     Dosage: 300 MG, QOW
     Route: 058
  2. NICOTINE [Concomitant]
     Active Substance: NICOTINE
  3. CELECOXIB [Concomitant]
     Active Substance: CELECOXIB
  4. SERTRALINE HYDROCHLORIDE [Concomitant]
     Active Substance: SERTRALINE HYDROCHLORIDE
  5. ZINC [Concomitant]
     Active Substance: ZINC

REACTIONS (1)
  - Injection site pain [Unknown]
